FAERS Safety Report 9744253 (Version 1)
Quarter: 2013Q4

REPORT INFORMATION
  Report Type: Spontaneous
  Country: US (occurrence: US)
  Receive Date: 20131210
  Receipt Date: 20131210
  Transmission Date: 20140711
  Serious: No
  Sender: FDA-Public Use
  Company Number: US-BIOGENIDEC-2013BI102110

PATIENT
  Age: 49 Year
  Sex: Male
  Weight: 97 kg

DRUGS (6)
  1. TECFIDERA [Suspect]
     Indication: PRODUCT USED FOR UNKNOWN INDICATION
     Route: 048
  2. TECFIDERA [Suspect]
     Indication: PRODUCT USED FOR UNKNOWN INDICATION
     Route: 048
  3. TOVIAZ [Concomitant]
  4. DDAVP [Concomitant]
  5. LOSARTAN POT [Concomitant]
  6. PROVIGIL [Concomitant]

REACTIONS (6)
  - Defaecation urgency [Unknown]
  - Muscle spasms [Unknown]
  - Flushing [Unknown]
  - Skin burning sensation [Unknown]
  - Abdominal discomfort [Unknown]
  - Diarrhoea [Unknown]
